FAERS Safety Report 7741123-9 (Version None)
Quarter: 2011Q3

REPORT INFORMATION
  Report Type: 
  Country: None (occurrence: None)
  Receive Date: 20110909
  Receipt Date: 20110830
  Transmission Date: 20111222
  Serious: Yes (Other)
  Sender: FDA-Public Use
  Company Number: CN-GENENTECH-323786

PATIENT
  Age: 55 Year
  Sex: Male
  Weight: 88 kg

DRUGS (5)
  1. DOXORUBICIN HCL [Concomitant]
     Indication: B-CELL LYMPHOMA
     Dosage: UNK UNK, Q3W
     Route: 041
     Dates: start: 20110712
  2. RITUXIMAB [Suspect]
     Indication: B-CELL LYMPHOMA
     Dosage: 600 MG, Q3W
     Route: 041
     Dates: start: 20110712
  3. VINCRISTINE [Concomitant]
     Indication: B-CELL LYMPHOMA
     Dosage: UNK UNK, Q3W
     Route: 041
     Dates: start: 20110712
  4. CYCLOPHOSPHAMIDE [Concomitant]
     Indication: B-CELL LYMPHOMA
     Dosage: UNK UNK, Q3W
     Route: 041
     Dates: start: 20110712
  5. PREDNISONE [Concomitant]
     Indication: B-CELL LYMPHOMA
     Dosage: UNK UNK, Q3W
     Route: 048
     Dates: start: 20110712

REACTIONS (3)
  - NEUTROPHIL COUNT DECREASED [None]
  - LIVER INJURY [None]
  - WHITE BLOOD CELL COUNT DECREASED [None]
